FAERS Safety Report 14430766 (Version 1)
Quarter: 2018Q1

REPORT INFORMATION
  Report Type: Spontaneous
  Country: US (occurrence: US)
  Receive Date: 20180123
  Receipt Date: 20180123
  Transmission Date: 20180509
  Serious: Yes (Disabling)
  Sender: FDA-Public Use
  Company Number: None

PATIENT
  Age: 4 Year
  Sex: Female
  Weight: 15.75 kg

DRUGS (2)
  1. LACTULOSE. [Concomitant]
     Active Substance: LACTULOSE
  2. MIRALAX [Suspect]
     Active Substance: POLYETHYLENE GLYCOL 3350
     Indication: CONSTIPATION
     Route: 048
     Dates: start: 20170801, end: 20170930

REACTIONS (6)
  - Aggression [None]
  - Therapy cessation [None]
  - Abdominal pain upper [None]
  - Anger [None]
  - Abnormal behaviour [None]
  - Tremor [None]

NARRATIVE: CASE EVENT DATE: 20170901
